FAERS Safety Report 17836258 (Version 1)
Quarter: 2020Q2

REPORT INFORMATION
  Report Type: Spontaneous
  Country: US (occurrence: US)
  Receive Date: 20200528
  Receipt Date: 20200528
  Transmission Date: 20200714
  Serious: Yes (Other)
  Sender: FDA-Public Use
  Company Number: NVSC2020US141032

PATIENT
  Sex: Male

DRUGS (1)
  1. BEOVU [Suspect]
     Active Substance: BROLUCIZUMAB-DBLL
     Indication: NEOVASCULAR AGE-RELATED MACULAR DEGENERATION
     Dosage: 6 MG, QMO (INTO THE EYES)
     Route: 047
     Dates: start: 20200512

REACTIONS (4)
  - Endophthalmitis [Unknown]
  - Anterior chamber cell [Unknown]
  - Anterior chamber flare [Unknown]
  - Vitreal cells [Unknown]
